FAERS Safety Report 4381542-4 (Version None)
Quarter: 2004Q2

REPORT INFORMATION
  Report Type: 
  Country: None (occurrence: None)
  Receive Date: 20040621
  Receipt Date: 20021227
  Transmission Date: 20050107
  Serious: Yes (Hospitalization)
  Sender: FDA-Public Use
  Company Number: PHHO2002US10597

PATIENT
  Age: 63 Year
  Sex: Male
  Weight: 84 kg

DRUGS (14)
  1. ERL 080A [Suspect]
     Indication: RENAL TRANSPLANT
     Dosage: 720 MG, BID
     Route: 048
     Dates: start: 20020511
  2. IMMUNE SERUM GLOBULIN [Suspect]
     Indication: KIDNEY TRANSPLANT REJECTION
     Dates: start: 20040101
  3. IMMUNE SERUM GLOBULIN [Suspect]
     Dosage: 90 G, QD
     Route: 042
     Dates: start: 20021223, end: 20021224
  4. PREDNISONE [Concomitant]
     Indication: RENAL TRANSPLANT
     Dosage: 5 MG, QD
     Route: 048
     Dates: start: 20010116
  5. ALLOPURINOL [Concomitant]
     Dosage: 100 MG, QD
     Route: 048
  6. DARBEPOETIN ALFA [Concomitant]
     Dosage: 60MCG PER MONTH
  7. COLACE [Concomitant]
  8. ENALAPRIL MALEATE [Concomitant]
     Dosage: 10 MG, QD
     Route: 048
  9. LASIX [Concomitant]
     Dosage: 40 MG, QD
     Route: 048
  10. LIPITOR [Concomitant]
     Dosage: 10 MG, QD
     Route: 048
  11. METOPROLOL TARTRATE [Concomitant]
     Dosage: 50 MG, QD
     Route: 048
  12. CELLCEPT [Concomitant]
     Dosage: 720 MG, BID
     Route: 048
  13. CELLCEPT [Concomitant]
     Dosage: 50 MG, BID
  14. NEORAL [Suspect]
     Indication: RENAL TRANSPLANT
     Dosage: 100MG BID
     Route: 048
     Dates: start: 20010815

REACTIONS (13)
  - ANURIA [None]
  - BLOOD CREATININE INCREASED [None]
  - CORONARY ARTERY DISEASE [None]
  - CORYNEBACTERIUM INFECTION [None]
  - CULTURE URINE POSITIVE [None]
  - DRUG INEFFECTIVE [None]
  - HAEMODIALYSIS [None]
  - HYPERTENSION [None]
  - KIDNEY TRANSPLANT REJECTION [None]
  - KLEBSIELLA INFECTION [None]
  - NEPHRITIS INTERSTITIAL [None]
  - RENAL FAILURE ACUTE [None]
  - TRANSPLANT REJECTION [None]
